FAERS Safety Report 25852108 (Version 3)
Quarter: 2025Q4

REPORT INFORMATION
  Report Type: Report from Study
  Country: US (occurrence: US)
  Receive Date: 20250926
  Receipt Date: 20251224
  Transmission Date: 20260117
  Serious: Yes (Other)
  Sender: NOVARTIS
  Company Number: US-002147023-NVSC2025US102906

PATIENT
  Age: 70 Year
  Sex: Female

DRUGS (1)
  1. LEQVIO [Suspect]
     Active Substance: INCLISIRAN SODIUM
     Indication: Product used for unknown indication
     Dosage: 284 MG
     Route: 058
     Dates: start: 20250616, end: 20250916

REACTIONS (15)
  - Rheumatoid arthritis [Unknown]
  - Systemic lupus erythematosus [Unknown]
  - Malaise [Unknown]
  - Pain [Unknown]
  - Arthritis [Unknown]
  - Osteoarthritis [Unknown]
  - Arthralgia [Unknown]
  - Pain in extremity [Unknown]
  - Gait disturbance [Unknown]
  - Thyroid disorder [Unknown]
  - Liver disorder [Unknown]
  - Blood cholesterol decreased [Unknown]
  - Anxiety [Unknown]
  - Product dose omission issue [Unknown]
  - Drug ineffective [Unknown]

NARRATIVE: CASE EVENT DATE: 20250601
